FAERS Safety Report 18915191 (Version 2)
Quarter: 2022Q2

REPORT INFORMATION
  Report Type: Report from Study
  Country: CZ (occurrence: CZ)
  Receive Date: 20210219
  Receipt Date: 20220401
  Transmission Date: 20220721
  Serious: Yes (Death)
  Sender: FDA-Public Use
  Company Number: CZ-JNJFOC-20210229178

PATIENT
  Age: 64 Year
  Sex: Male
  Weight: 88.4 kg

DRUGS (5)
  1. ESKETAMINE [Suspect]
     Active Substance: ESKETAMINE
     Indication: Depression
     Dates: start: 20171222, end: 20210128
  2. VENLAFAXINE [Concomitant]
     Active Substance: VENLAFAXINE HYDROCHLORIDE
     Indication: Depression
     Route: 048
     Dates: start: 20171218
  3. OLAZAX [Concomitant]
     Indication: Depression
     Route: 048
     Dates: start: 20171219
  4. RIVOTRIL [Concomitant]
     Active Substance: CLONAZEPAM
     Indication: Depression
     Route: 048
     Dates: start: 20180329
  5. ZOLPIDEM [Concomitant]
     Active Substance: ZOLPIDEM TARTRATE
     Indication: Depression
     Route: 048
     Dates: start: 20190708

REACTIONS (1)
  - COVID-19 [Fatal]

NARRATIVE: CASE EVENT DATE: 20210201
